FAERS Safety Report 10315275 (Version 2)
Quarter: 2014Q3

REPORT INFORMATION
  Report Type: Other
  Country: US (occurrence: US)
  Receive Date: 20140719
  Receipt Date: 20140719
  Transmission Date: 20150326
  Serious: Yes (Hospitalization, Other)
  Sender: FDA-Public Use
  Company Number: US-GSKPPD-2014GSK005136

PATIENT
  Age: 64 Year
  Sex: Female
  Weight: 116 kg

DRUGS (6)
  1. LOSARTAN [Concomitant]
     Active Substance: LOSARTAN
  2. FELODIPINE. [Concomitant]
     Active Substance: FELODIPINE
  3. COZAAR [Concomitant]
     Active Substance: LOSARTAN POTASSIUM
  4. LOVASTATIN. [Concomitant]
     Active Substance: LOVASTATIN
  5. ATENOLOL. [Concomitant]
     Active Substance: ATENOLOL
  6. AVANDIA [Suspect]
     Active Substance: ROSIGLITAZONE MALEATE
     Indication: DIABETES MELLITUS
     Route: 048
     Dates: start: 200704

REACTIONS (1)
  - Cardiac failure congestive [Recovered/Resolved]

NARRATIVE: CASE EVENT DATE: 20070403
